FAERS Safety Report 14904624 (Version 1)
Quarter: 2018Q2

REPORT INFORMATION
  Report Type: Spontaneous
  Country: US (occurrence: US)
  Receive Date: 20180517
  Receipt Date: 20180517
  Transmission Date: 20180711
  Serious: No
  Sender: FDA-Public Use
  Company Number: US-SA-2017SA169687

PATIENT
  Age: 55 Year
  Sex: Female

DRUGS (4)
  1. SOLOSTAR [Suspect]
     Active Substance: DEVICE
     Indication: TYPE 2 DIABETES MELLITUS
     Dosage: FREQUENCY SLIDING SCALE
     Dates: start: 201706
  2. LANTUS SOLOSTAR [Suspect]
     Active Substance: INSULIN GLARGINE
     Indication: TYPE 2 DIABETES MELLITUS
     Dosage: FREQUENCY SLIDING SCALE DOSE:50 UNIT(S)
     Route: 051
     Dates: start: 201706
  3. LANTUS SOLOSTAR [Suspect]
     Active Substance: INSULIN GLARGINE
     Indication: TYPE 2 DIABETES MELLITUS
     Dosage: FREQUENCY SLIDING SCALE DOSE:50 UNIT(S)
     Route: 051
     Dates: start: 201706
  4. SOLOSTAR [Suspect]
     Active Substance: DEVICE
     Indication: TYPE 2 DIABETES MELLITUS
     Dosage: FREQUENCY SLIDING SCALE
     Dates: start: 201706

REACTIONS (4)
  - Blood glucose abnormal [Unknown]
  - Product use issue [Unknown]
  - Underdose [Unknown]
  - Device use issue [Unknown]

NARRATIVE: CASE EVENT DATE: 201706
